FAERS Safety Report 16127960 (Version 1)
Quarter: 2019Q1

REPORT INFORMATION
  Report Type: Spontaneous
  Country: US (occurrence: US)
  Receive Date: 20190328
  Receipt Date: 20190328
  Transmission Date: 20190418
  Serious: No
  Sender: FDA-Public Use
  Company Number: US-BAYER-2019-058437

PATIENT
  Age: 85 Year
  Sex: Female
  Weight: 43 kg

DRUGS (1)
  1. MIRALAX [Suspect]
     Active Substance: POLYETHYLENE GLYCOL 3350
     Indication: GASTROINTESTINAL DISORDER
     Dosage: 1 TABLE SPOON IN 8 OZ WATER AT NIGHTS DOSE
     Route: 048
     Dates: start: 20190301, end: 20190321

REACTIONS (5)
  - Product quality issue [Unknown]
  - Drug ineffective [Unknown]
  - Product colour issue [None]
  - Product use issue [Unknown]
  - Faeces hard [Unknown]
